FAERS Safety Report 10873216 (Version 2)
Quarter: 2015Q1

REPORT INFORMATION
  Report Type: Report from Study
  Country: PT (occurrence: PT)
  Receive Date: 20150227
  Receipt Date: 20150308
  Transmission Date: 20150721
  Serious: No
  Sender: FDA-Public Use
  Company Number: PHHY2015PT016064

PATIENT
  Age: 40 Year

DRUGS (1)
  1. EXTAVIA [Suspect]
     Active Substance: INTERFERON BETA-1B
     Indication: MULTIPLE SCLEROSIS
     Dosage: 250 UG, QOD
     Route: 058
     Dates: start: 20140804

REACTIONS (5)
  - Headache [Recovered/Resolved]
  - Balance disorder [Unknown]
  - Headache [Recovered/Resolved]
  - Hepatic steatosis [Unknown]
  - Immune system disorder [Unknown]

NARRATIVE: CASE EVENT DATE: 201411
